FAERS Safety Report 4916794-2 (Version None)
Quarter: 2006Q1

REPORT INFORMATION
  Report Type: 
  Country: None (occurrence: None)
  Receive Date: 20060216
  Receipt Date: 20060216
  Transmission Date: 20060701
  Serious: No
  Sender: FDA-Public Use
  Company Number: None

PATIENT
  Age: 17 Year
  Sex: Male
  Weight: 61.2356 kg

DRUGS (3)
  1. GSN/PHENYLEPHERINE [Suspect]
     Indication: SINUSITIS
     Dosage: 1 TABLET  TWICE DAILY ORALLY
     Route: 048
     Dates: start: 20040428, end: 20040501
  2. GSN/PHENYLEPHERINE [Suspect]
     Indication: UPPER RESPIRATORY TRACT INFECTION
     Dosage: 1 TABLET  TWICE DAILY ORALLY
     Route: 048
     Dates: start: 20040428, end: 20040501
  3. CONCERTA [Concomitant]

REACTIONS (5)
  - ABDOMINAL PAIN [None]
  - MEDICATION TAMPERING [None]
  - ORAL INTAKE REDUCED [None]
  - PHARMACEUTICAL PRODUCT COMPLAINT [None]
  - VOMITING [None]
